FAERS Safety Report 10079728 (Version 2)
Quarter: 2014Q3

REPORT INFORMATION
  Report Type: Spontaneous
  Country: CA (occurrence: CA)
  Receive Date: 20140415
  Receipt Date: 20140701
  Transmission Date: 20150326
  Serious: Yes (Death, Hospitalization, Other)
  Sender: FDA-Public Use
  Company Number: CA-CELGENEUS-028-21880-14042062

PATIENT
  Age: 86 Year
  Sex: Female
  Weight: 43.13 kg

DRUGS (8)
  1. HYDROMORPH CONTIN [Concomitant]
     Active Substance: HYDROMORPHONE
     Indication: ANALGESIC THERAPY
     Dosage: 2 CAPSULE
     Route: 048
  2. REVLIMID [Suspect]
     Active Substance: LENALIDOMIDE
     Indication: PLASMA CELL MYELOMA
     Route: 048
     Dates: start: 2013, end: 2013
  3. DEXAMETHASONE. [Suspect]
     Active Substance: DEXAMETHASONE
     Indication: PRODUCT USED FOR UNKNOWN INDICATION
     Dosage: 20 MILLIGRAM
     Route: 048
     Dates: start: 2013, end: 2013
  4. TRIAZIDE [Concomitant]
     Indication: PRODUCT USED FOR UNKNOWN INDICATION
     Dosage: 50/25 MG
     Route: 048
  5. WARFARIN [Concomitant]
     Active Substance: WARFARIN
     Indication: THROMBOSIS PROPHYLAXIS
     Dosage: 3.5 MILLIGRAM
     Route: 048
  6. DILANTIN [Concomitant]
     Active Substance: PHENYTOIN
     Indication: CONVULSION
     Dosage: 6 TABLET
     Route: 065
  7. PREVACID [Concomitant]
     Active Substance: LANSOPRAZOLE
     Indication: DYSPEPSIA
     Dosage: 30 MILLIGRAM
     Route: 065
  8. NORVASC [Concomitant]
     Active Substance: AMLODIPINE BESYLATE
     Indication: HYPERTENSION
     Dosage: 4 TABLET
     Route: 048

REACTIONS (6)
  - Pulmonary oedema [Not Recovered/Not Resolved]
  - Renal impairment [Not Recovered/Not Resolved]
  - Dyspnoea [Not Recovered/Not Resolved]
  - Cardiac failure congestive [Not Recovered/Not Resolved]
  - Asthenia [Not Recovered/Not Resolved]
  - Death [Fatal]

NARRATIVE: CASE EVENT DATE: 2013
